FAERS Safety Report 23549068 (Version 1)
Quarter: 2024Q1

REPORT INFORMATION
  Report Type: Spontaneous
  Country: GB (occurrence: GB)
  Receive Date: 20240221
  Receipt Date: 20240221
  Transmission Date: 20240409
  Serious: Yes (Other)
  Sender: FDA-Public Use
  Company Number: None

PATIENT
  Age: 35 Year
  Sex: Female

DRUGS (3)
  1. CIPROFLOXACIN [Suspect]
     Active Substance: CIPROFLOXACIN
     Indication: Ear infection
     Dosage: 500 MG, BID
     Dates: start: 20240206, end: 20240208
  2. IBUPROFEN [Concomitant]
     Active Substance: IBUPROFEN
     Indication: Swelling
     Dosage: UNK
     Dates: start: 20240203, end: 20240206
  3. ACETAMINOPHEN [Concomitant]
     Active Substance: ACETAMINOPHEN
     Indication: Analgesic therapy
     Dates: start: 20240203

REACTIONS (3)
  - Insomnia [Recovering/Resolving]
  - Palpitations [Recovered/Resolved]
  - Paraesthesia [Recovered/Resolved]

NARRATIVE: CASE EVENT DATE: 20240206
